FAERS Safety Report 8804588 (Version 1)
Quarter: 2012Q4

REPORT INFORMATION
  Report Type: 
  Country: US (occurrence: US)
  Receive Date: 20120923
  Receipt Date: 20120923
  Transmission Date: 20130627
  Serious: Yes (Death)
  Sender: FDA-Public Use
  Company Number: US-009507513-1208USA008883

PATIENT
  Age: 60 Year
  Sex: Female

DRUGS (8)
  1. VICTRELIS [Suspect]
     Dosage: Frequency: take 4 capsules by mouth every 8 hours with food (after 4 week lead in)
     Route: 048
  2. REBETOL [Suspect]
  3. PEGASYS [Concomitant]
  4. BUSPAR [Concomitant]
  5. CELEXA [Concomitant]
  6. ABILIFY [Concomitant]
  7. VITAMINS (UNSPECIFIED) [Concomitant]
  8. CALCIUM (UNSPECIFIED) [Concomitant]

REACTIONS (2)
  - Death [Fatal]
  - Platelet count decreased [Unknown]
